FAERS Safety Report 10073850 (Version 1)
Quarter: 2014Q2

REPORT INFORMATION
  Report Type: Spontaneous
  Country: US (occurrence: US)
  Receive Date: 20140411
  Receipt Date: 20140411
  Transmission Date: 20141212
  Serious: Yes (Other)
  Sender: FDA-Public Use
  Company Number: US-ASTRAZENECA-2014SE25322

PATIENT
  Age: 594 Month
  Sex: Male

DRUGS (10)
  1. SEROQUEL [Suspect]
     Route: 048
  2. SEROQUEL [Suspect]
     Route: 048
     Dates: start: 20140401
  3. PROGRAF [Suspect]
     Indication: BONE MARROW TRANSPLANT
     Route: 048
     Dates: start: 20140120
  4. PROGRAF [Suspect]
     Indication: PROPHYLAXIS AGAINST GRAFT VERSUS HOST DISEASE
     Route: 048
     Dates: start: 20140120
  5. APO-PREDNISONE [Suspect]
     Indication: GRAFT VERSUS HOST DISEASE
     Route: 048
  6. APO-PREDNISONE [Suspect]
     Indication: GRAFT VERSUS HOST DISEASE
     Route: 048
  7. FLUDARABINE [Concomitant]
     Dates: start: 20140115, end: 20140118
  8. MELPHALAN [Concomitant]
     Dates: start: 20140122
  9. BORTEZOMIB [Concomitant]
     Dates: start: 20140116, end: 20140119
  10. ATG [Concomitant]
     Dosage: 0.5/1.5/2 MG/KG
     Dates: start: 20140117, end: 20140119

REACTIONS (23)
  - Bone marrow failure [Recovering/Resolving]
  - Gastrointestinal toxicity [Recovered/Resolved]
  - Mucosal inflammation [Recovering/Resolving]
  - Graft versus host disease in skin [Recovering/Resolving]
  - Febrile neutropenia [Recovering/Resolving]
  - Hypomagnesaemia [Unknown]
  - Respiratory syncytial virus infection [Recovered/Resolved]
  - Cytomegalovirus infection [Unknown]
  - Epstein-Barr virus test positive [Recovered/Resolved]
  - Viral haemorrhagic cystitis [Recovered/Resolved]
  - BK virus infection [Recovered/Resolved]
  - Thrombocytopenia [Not Recovered/Not Resolved]
  - Rash erythematous [Unknown]
  - Electrolyte imbalance [Unknown]
  - Lung disorder [Unknown]
  - Pain [Unknown]
  - Oral candidiasis [Recovered/Resolved]
  - Insomnia [Unknown]
  - Dysuria [Unknown]
  - Muscular weakness [Unknown]
  - Muscle spasms [Recovered/Resolved]
  - Oedema peripheral [Unknown]
  - Lethargy [Unknown]
